FAERS Safety Report 6348054-X (Version None)
Quarter: 2009Q3

REPORT INFORMATION
  Report Type: 
  Country: None (occurrence: None)
  Receive Date: 20090910
  Receipt Date: 20090903
  Transmission Date: 20100115
  Serious: Yes (Hospitalization, Other)
  Sender: FDA-Public Use
  Company Number: PHHY2009BR35960

PATIENT
  Age: 61 Year
  Sex: Female

DRUGS (2)
  1. RASILEZ [Suspect]
     Dosage: 300 MG
  2. FORASEQ [Suspect]
     Dosage: 12/400 MCG

REACTIONS (4)
  - GALLBLADDER OPERATION [None]
  - HEADACHE [None]
  - HYPERTENSION [None]
  - VOMITING [None]
